FAERS Safety Report 5265100-5 (Version None)
Quarter: 2007Q1

REPORT INFORMATION
  Report Type: 
  Country: None (occurrence: None)
  Receive Date: 20061122
  Receipt Date: 20061011
  Transmission Date: 20070707
  Serious: Yes (Hospitalization)
  Sender: FDA-Public Use
  Company Number: US-JNJFOC-20061003086

PATIENT
  Age: 46 Year
  Sex: Female
  Weight: 81 kg

DRUGS (13)
  1. RISPERDAL CONSTA [Suspect]
     Indication: SCHIZOPHRENIA
     Dosage: 37.5 MG, 1 IN 2 WEEK; INTRAMUSCULAR, 50 MG, 1 IN 2 WEEK, INTRAMUSCULAR
     Route: 030
     Dates: start: 20051001, end: 20060901
  2. RISPERDAL CONSTA [Suspect]
     Indication: SCHIZOPHRENIA
     Dosage: 37.5 MG, 1 IN 2 WEEK; INTRAMUSCULAR, 50 MG, 1 IN 2 WEEK, INTRAMUSCULAR
     Route: 030
     Dates: start: 20060901, end: 20060928
  3. RISPERDAL [Concomitant]
  4. CHLOROHYDRATE (CHLORAL HYDRATE) [Concomitant]
  5. METFORMIN HCL [Concomitant]
  6. AVANDIA [Concomitant]
  7. KLONOPIN [Concomitant]
  8. DOCUSATE SODIUM (DOCUSATE SODIUM) [Concomitant]
  9. AMARYL [Concomitant]
  10. ADVAIR (SERETIDE MITE) [Concomitant]
  11. ALBUTEROL [Concomitant]
  12. ASPIRIN [Concomitant]
  13. PROTONICS (PANTOPRAZOLE) [Concomitant]

REACTIONS (1)
  - PANCREATITIS [None]
